FAERS Safety Report 5789404-2 (Version None)
Quarter: 2008Q2

REPORT INFORMATION
  Report Type: 
  Country: None (occurrence: None)
  Receive Date: 20080626
  Receipt Date: 20080614
  Transmission Date: 20081010
  Serious: Yes (Death)
  Sender: FDA-Public Use
  Company Number: TT-AVENTIS-200813041EU

PATIENT
  Age: 55 Year
  Sex: Female

DRUGS (4)
  1. CLEXANE [Suspect]
     Route: 058
  2. CLEXANE [Suspect]
     Route: 058
  3. CLEXANE [Suspect]
     Route: 058
  4. CLEXANE [Suspect]
     Route: 058

REACTIONS (2)
  - DRUG INEFFECTIVE [None]
  - PULMONARY EMBOLISM [None]
